FAERS Safety Report 17071532 (Version 1)
Quarter: 2019Q4

REPORT INFORMATION
  Report Type: Spontaneous
  Country: DE (occurrence: DE)
  Receive Date: 20191125
  Receipt Date: 20191125
  Transmission Date: 20200122
  Serious: Yes (Other)
  Sender: FDA-Public Use
  Company Number: DE-SUN PHARMACEUTICAL INDUSTRIES LTD-2019RR-228771

PATIENT
  Age: 39 Year
  Sex: Female
  Weight: 60 kg

DRUGS (5)
  1. VENLAFAXINE [Suspect]
     Active Substance: VENLAFAXINE HYDROCHLORIDE
     Indication: OBSESSIVE-COMPULSIVE DISORDER
     Dosage: 150 [MG/D (BIS 50 MG/D) ]/ REDUCTION TO 50 MG/D IN GW 11. ()
     Route: 048
     Dates: start: 20180601, end: 20190207
  2. ARIPIPRAZOL [Suspect]
     Active Substance: ARIPIPRAZOLE
     Indication: OBSESSIVE-COMPULSIVE DISORDER
     Dosage: 10 [MG/D (BIS 5 MG/D) ]/ 10 MG/D UNTIL GW 11, THEN DISCONTINUED, AGAIN AT GW 15+1 WITH 5 MG/D. ()
     Route: 048
     Dates: start: 20180601, end: 20190207
  3. INFLUENZA VACCINE [Concomitant]
     Active Substance: INFLUENZA VIRUS VACCINE
     Indication: IMMUNISATION
     Dosage: ()
     Route: 030
  4. VENLAFAXINE [Suspect]
     Active Substance: VENLAFAXINE HYDROCHLORIDE
     Indication: OBSESSIVE-COMPULSIVE DISORDER
     Dosage: UNK
     Route: 048
     Dates: start: 20180601, end: 20190207
  5. BOOSTRIX [Concomitant]
     Active Substance: TETANUS TOXOID, REDUCED DIPHTHERIA TOXOID AND ACELLULAR PERTUSSIS VACCINE, ADSORBED ANTIGENS
     Indication: IMMUNISATION
     Dosage: ()
     Route: 030
     Dates: start: 20180705, end: 20180705

REACTIONS (2)
  - Gestational diabetes [Recovered/Resolved]
  - Exposure during pregnancy [Unknown]
